FAERS Safety Report 7151322-5 (Version None)
Quarter: 2010Q4

REPORT INFORMATION
  Report Type: 
  Country: None (occurrence: None)
  Receive Date: 20101126
  Receipt Date: 20101115
  Transmission Date: 20110411
  Serious: Yes (Other)
  Sender: FDA-Public Use
  Company Number: 2010P1002286

PATIENT
  Age: 60 Year
  Sex: Male
  Weight: 88.905 kg

DRUGS (5)
  1. BACTRIM [Suspect]
     Indication: SINUSITIS
     Dosage: 2 TABLETS; TID; PO
     Route: 048
     Dates: start: 20101005, end: 20101008
  2. HYDROCHLOROTHIAZIDE [Concomitant]
  3. ALBUTEROL INHALER [Concomitant]
  4. OMEPRAZOLE [Concomitant]
  5. OXYCODONE [Concomitant]

REACTIONS (16)
  - ABDOMINAL DISCOMFORT [None]
  - BACK PAIN [None]
  - CHEST DISCOMFORT [None]
  - CHEST PAIN [None]
  - CHRONIC OBSTRUCTIVE PULMONARY DISEASE [None]
  - CONDITION AGGRAVATED [None]
  - GASTRIC DISORDER [None]
  - HAEMATOCHEZIA [None]
  - HYPERHIDROSIS [None]
  - INCREASED APPETITE [None]
  - INSOMNIA [None]
  - MUSCULOSKELETAL PAIN [None]
  - NAUSEA [None]
  - NECK PAIN [None]
  - REFUSAL OF TREATMENT BY PATIENT [None]
  - WEIGHT INCREASED [None]
